FAERS Safety Report 9985654 (Version 1)
Quarter: 2014Q1

REPORT INFORMATION
  Report Type: Spontaneous
  Country: FR (occurrence: FR)
  Receive Date: 20140307
  Receipt Date: 20140307
  Transmission Date: 20141002
  Serious: Yes (Life-Threatening)
  Sender: FDA-Public Use
  Company Number: FR-PFIZER INC-2014063741

PATIENT
  Age: 71 Year
  Sex: Female

DRUGS (11)
  1. RAMIPRIL [Suspect]
     Dosage: 1.25 MG, DAILY
     Route: 048
  2. LASILIX [Suspect]
     Dosage: 1.5 DF, DAILY
     Route: 048
  3. LODOZ [Suspect]
     Indication: HYPERTENSION
     Dosage: 1 DF, DAILY
     Route: 048
  4. GLUCOPHAGE [Suspect]
     Indication: TYPE 2 DIABETES MELLITUS
     Dosage: 1 DF, 3X/DAY
     Route: 048
  5. JANUVIA [Concomitant]
     Indication: TYPE 2 DIABETES MELLITUS
  6. CORDARONE [Concomitant]
  7. LEVOTHYROX [Concomitant]
     Dosage: UNK
  8. SPIRIVA [Concomitant]
  9. CYSTEINE/METHIONINE [Concomitant]
  10. VOGALENE [Concomitant]
  11. PREVISCAN [Concomitant]

REACTIONS (2)
  - Lactic acidosis [Recovered/Resolved]
  - Renal failure acute [Recovered/Resolved]
